FAERS Safety Report 4897907-8 (Version None)
Quarter: 2006Q1

REPORT INFORMATION
  Report Type: 
  Country: None (occurrence: None)
  Receive Date: 20060201
  Receipt Date: 20060125
  Transmission Date: 20060701
  Serious: Yes (Hospitalization, Other)
  Sender: FDA-Public Use
  Company Number: US-MERCK-0601USA03123

PATIENT
  Age: 78 Year
  Sex: Male
  Weight: 70 kg

DRUGS (9)
  1. VIOXX [Suspect]
     Indication: NECK PAIN
     Route: 048
     Dates: start: 19991115, end: 20040503
  2. VIOXX [Suspect]
     Route: 048
     Dates: start: 19991115, end: 20040503
  3. VIOXX [Suspect]
     Route: 048
  4. VIOXX [Suspect]
     Route: 048
  5. CALCIUM (UNSPECIFIED) AND VITAMIN D (UNSPECIFIED) [Concomitant]
     Route: 065
  6. MAXZIDE [Concomitant]
     Route: 048
  7. CLARITIN-D [Concomitant]
     Route: 065
  8. ACIPHEX [Concomitant]
     Route: 048
  9. LOTREL [Concomitant]
     Route: 048

REACTIONS (61)
  - ABDOMINAL PAIN [None]
  - ANAEMIA [None]
  - AORTIC ARTERIOSCLEROSIS [None]
  - ARTHROPATHY [None]
  - ASTHENIA [None]
  - ATELECTASIS [None]
  - ATRIAL FIBRILLATION [None]
  - BACTERIA STOOL IDENTIFIED [None]
  - BLOOD BICARBONATE DECREASED [None]
  - BLOOD CHOLESTEROL INCREASED [None]
  - CEREBRAL ARTERY STENOSIS [None]
  - CEREBRAL INFARCTION [None]
  - CEREBRAL ISCHAEMIA [None]
  - CEREBROVASCULAR ACCIDENT [None]
  - CLOSTRIDIUM COLITIS [None]
  - CLUMSINESS [None]
  - COLITIS [None]
  - CONFUSIONAL STATE [None]
  - COORDINATION ABNORMAL [None]
  - COUGH [None]
  - DECUBITUS ULCER [None]
  - DEEP VEIN THROMBOSIS [None]
  - DEHYDRATION [None]
  - DIARRHOEA [None]
  - DIVERTICULUM [None]
  - FALL [None]
  - GAIT DISTURBANCE [None]
  - GASTRITIS [None]
  - GASTROINTESTINAL HAEMORRHAGE [None]
  - GASTROOESOPHAGEAL REFLUX DISEASE [None]
  - GRAVITATIONAL OEDEMA [None]
  - HAEMORRHAGE INTRACRANIAL [None]
  - HEAD INJURY [None]
  - HEADACHE [None]
  - HIATUS HERNIA [None]
  - HIGH DENSITY LIPOPROTEIN INCREASED [None]
  - HYPERCHOLESTEROLAEMIA [None]
  - HYPERLIPIDAEMIA [None]
  - HYPOAESTHESIA [None]
  - HYPOVOLAEMIA [None]
  - ILEITIS [None]
  - LEUKOCYTOSIS [None]
  - LOSS OF CONSCIOUSNESS [None]
  - LUNG INFILTRATION [None]
  - NAUSEA [None]
  - NUCLEAR MAGNETIC RESONANCE IMAGING ABNORMAL [None]
  - NUCLEAR MAGNETIC RESONANCE IMAGING BRAIN ABNORMAL [None]
  - OESOPHAGEAL STENOSIS [None]
  - PERIPHERAL VASCULAR DISORDER [None]
  - PLATELET COUNT INCREASED [None]
  - PLEURAL EFFUSION [None]
  - PNEUMONIA [None]
  - PYREXIA [None]
  - RECTAL HAEMORRHAGE [None]
  - RENAL FAILURE ACUTE [None]
  - SEPSIS [None]
  - SLUGGISHNESS [None]
  - URINARY TRACT INFECTION [None]
  - VENOUS INSUFFICIENCY [None]
  - VERTEBRAL ARTERY OCCLUSION [None]
  - VOMITING [None]
